FAERS Safety Report 6272623-9 (Version None)
Quarter: 2009Q3

REPORT INFORMATION
  Report Type: 
  Country: None (occurrence: None)
  Receive Date: 20090713
  Receipt Date: 20090122
  Transmission Date: 20100115
  Serious: Yes (Other)
  Sender: FDA-Public Use
  Company Number: 610023

PATIENT
  Age: 53 Year
  Sex: Female
  Weight: 74.8 kg

DRUGS (10)
  1. BONIVA [Suspect]
     Indication: OSTEOPOROSIS
     Dosage: 150 MG 1 PER MONTH ORAL
     Route: 048
     Dates: start: 20080822, end: 20081227
  2. ZOLOFT [Concomitant]
  3. NEXIUM [Concomitant]
  4. LIPITOR [Concomitant]
  5. TOPROL-XL [Concomitant]
  6. VALTREX [Concomitant]
  7. ALBUTEROL [Concomitant]
  8. B12 INJECTIONS (CYANOCOBALAMIN) [Concomitant]
  9. CLARITIN [Concomitant]
  10. SINGULAIR [Concomitant]

REACTIONS (2)
  - DIARRHOEA [None]
  - GASTROOESOPHAGEAL REFLUX DISEASE [None]
